FAERS Safety Report 5396024-0 (Version None)
Quarter: 2007Q3

REPORT INFORMATION
  Report Type: 
  Country: None (occurrence: None)
  Receive Date: 20070724
  Receipt Date: 20070712
  Transmission Date: 20080115
  Serious: Yes (Hospitalization)
  Sender: FDA-Public Use
  Company Number: US-PFIZER INC-2007058392

PATIENT
  Age: 48 Year
  Sex: Female
  Weight: 63.5 kg

DRUGS (10)
  1. CELEBREX [Suspect]
     Indication: BACK PAIN
     Dates: start: 19990101, end: 20030101
  2. BEXTRA [Suspect]
     Indication: BACK PAIN
     Dates: start: 20030101, end: 20040101
  3. ADVIL LIQUI-GELS [Concomitant]
  4. ALEVE [Concomitant]
  5. DARVOCET [Concomitant]
  6. OXYCONTIN [Concomitant]
  7. PERCOCET [Concomitant]
  8. TYLENOL (CAPLET) [Concomitant]
  9. ULTRAMIDOL [Concomitant]
  10. VIOXX [Concomitant]

REACTIONS (1)
  - CEREBROVASCULAR ACCIDENT [None]
